FAERS Safety Report 13917873 (Version 2)
Quarter: 2017Q3

REPORT INFORMATION
  Report Type: Report from Study
  Country: AR (occurrence: AR)
  Receive Date: 20170829
  Receipt Date: 20170926
  Transmission Date: 20171127
  Serious: Yes (Hospitalization, Other)
  Sender: FDA-Public Use
  Company Number: PHHY2017AR125377

PATIENT
  Age: 56 Year
  Sex: Male

DRUGS (2)
  1. COSENTYX [Suspect]
     Active Substance: SECUKINUMAB
     Indication: PSORIASIS
     Dosage: 300 MG, QMO
     Route: 065
     Dates: start: 20160429, end: 201611
  2. COSENTYX [Suspect]
     Active Substance: SECUKINUMAB
     Indication: PSORIATIC ARTHROPATHY
     Dosage: 300 MG, QMO
     Route: 065
     Dates: start: 201701, end: 201702

REACTIONS (11)
  - Post procedural complication [Unknown]
  - Pyrexia [Unknown]
  - Hepatic lesion [Unknown]
  - Inappropriate schedule of drug administration [Unknown]
  - Decreased immune responsiveness [Unknown]
  - Cholelithiasis [Recovering/Resolving]
  - Abdominal pain [Unknown]
  - Postoperative wound infection [Unknown]
  - Biliary fistula [Unknown]
  - Arthritis [Not Recovered/Not Resolved]
  - Psoriasis [Not Recovered/Not Resolved]

NARRATIVE: CASE EVENT DATE: 201609
